FAERS Safety Report 4782016-9 (Version None)
Quarter: 2005Q3

REPORT INFORMATION
  Report Type: 
  Country: None (occurrence: None)
  Receive Date: 20050928
  Receipt Date: 20050801
  Transmission Date: 20060218
  Serious: Yes (Other)
  Sender: FDA-Public Use
  Company Number: US-MERCK-0508USA00490

PATIENT
  Age: 55 Year
  Sex: Female
  Weight: 76 kg

DRUGS (2)
  1. VIOXX [Suspect]
     Route: 048
     Dates: start: 20010901, end: 20030904
  2. VIOXX [Suspect]
     Route: 048
     Dates: start: 20010901, end: 20030904

REACTIONS (3)
  - BUNION [None]
  - MYOCARDIAL INFARCTION [None]
  - THROMBOSIS [None]
